FAERS Safety Report 23405238 (Version 1)
Quarter: 2024Q1

REPORT INFORMATION
  Report Type: Spontaneous
  Country: CN (occurrence: None)
  Receive Date: 20240116
  Receipt Date: 20240116
  Transmission Date: 20240410
  Serious: Yes (Hospitalization)
  Sender: FDA-Public Use
  Company Number: CN-ROCHE-3492167

PATIENT
  Age: 67 Year
  Sex: Female
  Weight: 35 kg

DRUGS (8)
  1. AVASTIN [Suspect]
     Active Substance: BEVACIZUMAB
     Indication: Retroperitoneal cancer
     Route: 041
     Dates: start: 20231201
  2. CARBOPLATIN [Suspect]
     Active Substance: CARBOPLATIN
     Indication: Retroperitoneal cancer
     Route: 041
     Dates: start: 20231201
  3. TISLELIZUMAB [Suspect]
     Active Substance: TISLELIZUMAB
     Indication: Retroperitoneal cancer
     Route: 041
     Dates: start: 20231201
  4. PACLITAXEL [Suspect]
     Active Substance: PACLITAXEL
     Indication: Retroperitoneal cancer
     Route: 041
     Dates: start: 20231201
  5. SODIUM CHLORIDE [Concomitant]
     Active Substance: SODIUM CHLORIDE
     Route: 041
     Dates: start: 20231201
  6. SODIUM CHLORIDE [Concomitant]
     Active Substance: SODIUM CHLORIDE
     Route: 041
     Dates: start: 20231201
  7. SODIUM CHLORIDE [Concomitant]
     Active Substance: SODIUM CHLORIDE
     Route: 041
     Dates: start: 20231201
  8. DEXTROSE [Concomitant]
     Active Substance: DEXTROSE\DEXTROSE MONOHYDRATE
     Route: 041
     Dates: start: 20231201

REACTIONS (1)
  - Myelosuppression [Recovering/Resolving]

NARRATIVE: CASE EVENT DATE: 20231225
